FAERS Safety Report 20248963 (Version 1)
Quarter: 2021Q4

REPORT INFORMATION
  Report Type: Report from Study
  Country: US (occurrence: US)
  Receive Date: 20211229
  Receipt Date: 20211229
  Transmission Date: 20220303
  Serious: Yes (Other)
  Sender: FDA-Public Use
  Company Number: US-BoehringerIngelheim-2021-BI-142330

PATIENT
  Age: 74 Year
  Sex: Male

DRUGS (1)
  1. OFEV [Suspect]
     Active Substance: NINTEDANIB
     Indication: Idiopathic pulmonary fibrosis
     Dosage: OFEV DOSE 300MG DAILY
     Route: 048
     Dates: start: 20211119

REACTIONS (8)
  - Suicidal ideation [Unknown]
  - Diarrhoea [Unknown]
  - Illness [Unknown]
  - Headache [Unknown]
  - Taste disorder [Unknown]
  - Abdominal discomfort [Unknown]
  - Cough [Unknown]
  - Cough [Unknown]

NARRATIVE: CASE EVENT DATE: 20211101
